FAERS Safety Report 9834808 (Version 4)
Quarter: 2015Q2

REPORT INFORMATION
  Report Type: Spontaneous
  Country: US (occurrence: US)
  Receive Date: 20140122
  Receipt Date: 20150414
  Transmission Date: 20150821
  Serious: Yes (Hospitalization, Other)
  Sender: FDA-Public Use
  Company Number: US-PFIZER INC-2014017415

PATIENT
  Age: 76 Year
  Sex: Female
  Weight: 53.27 kg

DRUGS (24)
  1. DILANTIN [Suspect]
     Active Substance: PHENYTOIN
     Indication: SEIZURE
     Dosage: 100 MG, 3X/DAY
     Route: 048
     Dates: start: 1960
  2. SUCRALFATE. [Concomitant]
     Active Substance: SUCRALFATE
     Indication: GASTRIC POLYPS
     Dosage: 1 MG, 2X/DAY
     Dates: start: 2000
  3. LORATADINE. [Concomitant]
     Active Substance: LORATADINE
     Indication: DERMATITIS ALLERGIC
     Dosage: 10 MG, 2X/DAY
     Dates: start: 2010
  4. DESIPRAMINE [Concomitant]
     Active Substance: DESIPRAMINE
     Indication: SLEEP DISORDER
     Dosage: 25 MG, 1X/DAY (AT 10:00 PM)
     Dates: start: 2012
  5. BENZONATATE. [Concomitant]
     Active Substance: BENZONATATE
     Indication: COUGH
     Dosage: 100 MG, AS NEEDED UP TO 3X/DAY
     Dates: start: 2013
  6. DIAZEPAM. [Concomitant]
     Active Substance: DIAZEPAM
     Indication: ANXIETY
     Dosage: 0.05 MG 1/2, 4X/DAY
     Dates: start: 1960
  7. LASIX [Concomitant]
     Active Substance: FUROSEMIDE
     Indication: FLUID RETENTION
     Dosage: 40 MG, 1X/DAY
     Dates: start: 2001
  8. ALBUTEROL. [Concomitant]
     Active Substance: ALBUTEROL
     Indication: EMPHYSEMA
     Dosage: 0.05 %, AS NEEDED
     Dates: start: 2012
  9. WOMEN^S CALCIUM [Concomitant]
     Dosage: 600 MG, 1X/DAY
  10. SYNTHROID [Concomitant]
     Active Substance: LEVOTHYROXINE SODIUM
     Indication: THYROID HORMONE REPLACEMENT THERAPY
     Dosage: 0.125 MG, 1X/DAY
     Dates: start: 1983
  11. NASALCROM [Concomitant]
     Active Substance: CROMOLYN SODIUM
     Indication: NASAL CONGESTION
     Dosage: 2 DF, AS NEEDED
     Dates: start: 2013
  12. DILANTIN [Suspect]
     Active Substance: PHENYTOIN
     Indication: EPILEPSY
  13. PROTONIX [Suspect]
     Active Substance: PANTOPRAZOLE SODIUM
     Indication: GASTROOESOPHAGEAL REFLUX DISEASE
     Dosage: 40 MG, 2X/DAY
     Dates: start: 2004
  14. VAGIFEM [Concomitant]
     Active Substance: ESTRADIOL
     Dosage: 25 MG, 1X/DAY AS NEEDED
     Route: 067
  15. METOPROLOL [Concomitant]
     Active Substance: METOPROLOL
     Indication: BLOOD PRESSURE ABNORMAL
     Dosage: 100 MG, 1X/DAY
     Dates: start: 2014
  16. BENZONATATE. [Concomitant]
     Active Substance: BENZONATATE
     Indication: NASAL CONGESTION
  17. VITAMIN C [Concomitant]
     Active Substance: ASCORBIC ACID
     Dosage: 500 MG, 2X/DAY
  18. PREMARIN [Suspect]
     Active Substance: ESTROGENS, CONJUGATED
     Indication: HYSTERECTOMY
  19. K-DUR [Concomitant]
     Active Substance: POTASSIUM CHLORIDE
     Indication: ELECTROLYTE SUBSTITUTION THERAPY
     Dosage: 20 MEQ, 1X/DAY
  20. PREMARIN [Suspect]
     Active Substance: ESTROGENS, CONJUGATED
     Indication: UTERINE CANCER
     Dosage: 0.625 MG, 1X/DAY (USED EVERY AM APPLIED DAILY)
     Route: 067
     Dates: start: 1999
  21. GABAPENTIN. [Concomitant]
     Active Substance: GABAPENTIN
     Dosage: 100 MG, UNK
  22. PREMARIN [Suspect]
     Active Substance: ESTROGENS, CONJUGATED
     Indication: VAGINAL DISORDER
     Dosage: 30 G, AS NEEDED
     Route: 067
  23. LASIX [Concomitant]
     Active Substance: FUROSEMIDE
     Indication: BLOOD PRESSURE ABNORMAL
  24. BUDESONIDE. [Concomitant]
     Active Substance: BUDESONIDE
     Dosage: 0.05 MG, AS NEEDED
     Dates: start: 2012

REACTIONS (6)
  - Back disorder [Recovered/Resolved]
  - Peripheral arterial occlusive disease [Unknown]
  - Pain [Recovering/Resolving]
  - Abasia [Unknown]
  - Spinal column stenosis [Unknown]
  - Wheelchair user [Unknown]
